FAERS Safety Report 4523180-6 (Version None)
Quarter: 2004Q4

REPORT INFORMATION
  Report Type: 
  Country: None (occurrence: None)
  Receive Date: 20041210
  Receipt Date: 20030418
  Transmission Date: 20050328
  Serious: Yes (Hospitalization)
  Sender: FDA-Public Use
  Company Number: US-AMGEN-US035892

PATIENT
  Sex: Female

DRUGS (7)
  1. ENBREL [Suspect]
     Indication: RHEUMATOID ARTHRITIS
     Route: 058
     Dates: start: 20021126, end: 20030401
  2. METHOTREXATE [Concomitant]
     Route: 048
     Dates: start: 19940101
  3. PREMARIN [Concomitant]
     Dates: start: 20000601
  4. PROGESTERONE [Concomitant]
     Dates: start: 20000601
  5. FOLIC ACID [Concomitant]
     Dates: start: 19990101
  6. CALCIUM [Concomitant]
     Dates: start: 20010601
  7. MULTI-VITAMINS [Concomitant]
     Dates: start: 20010601

REACTIONS (1)
  - MYASTHENIA GRAVIS [None]
